FAERS Safety Report 13491791 (Version 3)
Quarter: 2017Q2

REPORT INFORMATION
  Report Type: Report from Study
  Country: IN (occurrence: IN)
  Receive Date: 20170427
  Receipt Date: 20170530
  Transmission Date: 20170830
  Serious: Yes (Death, Hospitalization, Other)
  Sender: FDA-Public Use
  Company Number: PHHO2016IN017709

PATIENT
  Age: 23 Year
  Sex: Female
  Weight: 46 kg

DRUGS (12)
  1. PREDNISONE. [Suspect]
     Active Substance: PREDNISONE
     Indication: PRODUCT USED FOR UNKNOWN INDICATION
     Dosage: 10 MG, UNK
     Route: 065
  2. WYSOLONE [Suspect]
     Active Substance: PREDNISOLONE
     Indication: PROPHYLAXIS
     Dosage: 10 MG, QD
     Route: 048
     Dates: start: 20160525
  3. TACSANT [Suspect]
     Active Substance: TACROLIMUS
     Dosage: 1 MG, BID
     Route: 048
     Dates: start: 20170501
  4. TACSANT [Suspect]
     Active Substance: TACROLIMUS
     Dosage: 2.5 MG, BID
     Route: 048
     Dates: start: 20170420, end: 20170422
  5. TACSANT [Suspect]
     Active Substance: TACROLIMUS
     Dosage: 2 MG, BID
     Route: 048
     Dates: start: 20170422, end: 20170501
  6. OROFER-XT [Concomitant]
     Indication: ANAEMIA PROPHYLAXIS
     Dosage: BD
     Route: 065
     Dates: start: 20161226
  7. SEPTRAN [Concomitant]
     Indication: PROPHYLAXIS
     Dosage: QD
     Route: 048
     Dates: start: 20160128
  8. RANTAC [Concomitant]
     Active Substance: RANITIDINE HYDROCHLORIDE
     Indication: PROPHYLAXIS
     Dosage: 150 MG, BID
     Route: 065
     Dates: start: 20160121
  9. TACSANT [Suspect]
     Active Substance: TACROLIMUS
     Indication: RENAL TRANSPLANT
     Dosage: 3 MG, BID
     Route: 048
     Dates: start: 20160121, end: 20170419
  10. FOLVITE [Concomitant]
     Active Substance: FOLIC ACID
     Indication: ANAEMIA PROPHYLAXIS
     Dosage: 10 MG, BID
     Route: 065
     Dates: start: 20170103
  11. CERTICAN [Suspect]
     Active Substance: EVEROLIMUS
     Indication: RENAL TRANSPLANT
     Dosage: 0.75 MG, BID
     Route: 048
     Dates: start: 20160124, end: 20170419
  12. CERTICAN [Suspect]
     Active Substance: EVEROLIMUS
     Dosage: 0.5 MG, BID
     Route: 048
     Dates: start: 20170420

REACTIONS (7)
  - Sepsis [Recovering/Resolving]
  - Chronic kidney disease [Recovering/Resolving]
  - Pulmonary oedema [Fatal]
  - Cardio-respiratory arrest [Fatal]
  - Kidney transplant rejection [Recovered/Resolved]
  - Blood creatinine abnormal [Recovered/Resolved with Sequelae]
  - Hypertensive heart disease [Recovering/Resolving]

NARRATIVE: CASE EVENT DATE: 201611
